FAERS Safety Report 19030183 (Version 1)
Quarter: 2021Q1

REPORT INFORMATION
  Report Type: Spontaneous
  Country: US (occurrence: US)
  Receive Date: 20210318
  Receipt Date: 20210318
  Transmission Date: 20210420
  Serious: No
  Sender: FDA-Public Use
  Company Number: None

PATIENT
  Age: 42 Year
  Sex: Female
  Weight: 56.7 kg

DRUGS (10)
  1. BACLOFEN. [Concomitant]
     Active Substance: BACLOFEN
  2. VITAMIN B12 [Concomitant]
     Active Substance: CYANOCOBALAMIN
  3. EMGALITY [Suspect]
     Active Substance: GALCANEZUMAB-GNLM
     Indication: MIGRAINE
     Dosage: ?          QUANTITY:2 INJECTION(S);OTHER FREQUENCY:ONCE A MONTH;OTHER ROUTE:SUBCUTANEOUS INJECTION?
     Route: 058
     Dates: start: 20210119, end: 20210217
  4. FLONASE [Concomitant]
     Active Substance: FLUTICASONE PROPIONATE
  5. UBRELVY [Concomitant]
     Active Substance: UBROGEPANT
  6. ZANAFLEX [Concomitant]
     Active Substance: TIZANIDINE HYDROCHLORIDE
  7. PROBIOTICS [Concomitant]
     Active Substance: PROBIOTICS NOS
  8. AJOVY [Concomitant]
     Active Substance: FREMANEZUMAB-VFRM
  9. DIGESTIVE ENZYME [Concomitant]
     Active Substance: UNSPECIFIED INGREDIENT
  10. TORADOL [Concomitant]
     Active Substance: KETOROLAC TROMETHAMINE

REACTIONS (8)
  - Depression [None]
  - Alopecia [None]
  - Myalgia [None]
  - Pollakiuria [None]
  - Epistaxis [None]
  - Constipation [None]
  - Sleep disorder [None]
  - Weight increased [None]

NARRATIVE: CASE EVENT DATE: 20210120
